FAERS Safety Report 19046904 (Version 1)
Quarter: 2021Q1

REPORT INFORMATION
  Report Type: Spontaneous
  Country: NI (occurrence: NI)
  Receive Date: 20210323
  Receipt Date: 20210323
  Transmission Date: 20210420
  Serious: Yes (Hospitalization)
  Sender: FDA-Public Use
  Company Number: NI-DSJP-DSE-2021-108122

PATIENT
  Age: 40 Year
  Sex: Male
  Weight: 85 kg

DRUGS (4)
  1. OMEGA 3                            /01333901/ [Concomitant]
     Active Substance: FISH OIL\TOCOPHEROL
     Indication: HYPERTRIGLYCERIDAEMIA
     Dosage: 1 DF, TID
     Route: 048
     Dates: start: 20201101
  2. BENICAR AMLO 40/10 [Suspect]
     Active Substance: AMLODIPINE BESYLATE\OLMESARTAN MEDOXOMIL
     Indication: HYPERTENSION
     Dosage: 40/10 MG, QD
     Route: 048
     Dates: start: 20201115, end: 20210301
  3. BENICAR HCT [Suspect]
     Active Substance: HYDROCHLOROTHIAZIDE\OLMESARTAN MEDOXOMIL
     Indication: HYPERTENSION
     Dosage: 40/12.5 MG, QD
     Route: 048
     Dates: start: 20210301, end: 20210315
  4. MENOSTEROL [Concomitant]
     Indication: HYPERTRIGLYCERIDAEMIA
     Dosage: 40 MG, QD
     Route: 048
     Dates: start: 20210215, end: 20210228

REACTIONS (16)
  - Peripheral swelling [Unknown]
  - Insomnia [Unknown]
  - Muscle spasms [Unknown]
  - Abdominal distension [Unknown]
  - Vomiting [Unknown]
  - Hypotension [Not Recovered/Not Resolved]
  - Diarrhoea [Unknown]
  - Hypoaesthesia [Unknown]
  - Tachycardia [Not Recovered/Not Resolved]
  - Blood creatinine increased [Unknown]
  - Nervousness [Not Recovered/Not Resolved]
  - Swelling face [Unknown]
  - Weight decreased [Unknown]
  - Dyspnoea [Not Recovered/Not Resolved]
  - Hypoaesthesia [Not Recovered/Not Resolved]
  - Dehydration [Not Recovered/Not Resolved]

NARRATIVE: CASE EVENT DATE: 20210110
